FAERS Safety Report 9582795 (Version 1)
Quarter: 2013Q4

REPORT INFORMATION
  Report Type: Spontaneous
  Country: US (occurrence: US)
  Receive Date: 20131002
  Receipt Date: 20131002
  Transmission Date: 20140711
  Serious: No
  Sender: FDA-Public Use
  Company Number: US-AMGEN-USASP2013043178

PATIENT
  Age: 48 Year
  Sex: Male
  Weight: 88.44 kg

DRUGS (4)
  1. ENBREL [Suspect]
     Indication: PRODUCT USED FOR UNKNOWN INDICATION
     Dosage: 50 MG, EVERY TUESDAY AND FRIDAY
     Route: 058
  2. VITAMIN E                          /00110501/ [Concomitant]
     Dosage: 200 UNIT, UNK
  3. MULTIVITAMINS, PLAIN [Concomitant]
     Dosage: UNK
  4. VITAMIN A                          /00056001/ [Concomitant]
     Dosage: UNK

REACTIONS (4)
  - Drug ineffective [Unknown]
  - Pruritus [Unknown]
  - Sleep disorder [Unknown]
  - Psoriasis [Unknown]
